FAERS Safety Report 4848521-1 (Version None)
Quarter: 2005Q4

REPORT INFORMATION
  Report Type: 
  Country: None (occurrence: None)
  Receive Date: 20051206
  Receipt Date: 20051118
  Transmission Date: 20060501
  Serious: Yes (Other)
  Sender: FDA-Public Use
  Company Number: US_0508120496

PATIENT
  Age: 69 Year
  Sex: Male

DRUGS (24)
  1. CIALIS [Suspect]
     Indication: ERECTILE DYSFUNCTION
     Route: 048
     Dates: start: 20040422
  2. PRAVACHOL [Concomitant]
  3. ZITHROMAX [Concomitant]
  4. CEFACLOR [Concomitant]
  5. FLONASE [Concomitant]
  6. AUGMENTIN '125' [Concomitant]
  7. OXYCONTIN [Concomitant]
  8. ASTELIN [Concomitant]
  9. COLYTE [Concomitant]
  10. ACIPHEX [Concomitant]
  11. LOVASTATIN [Concomitant]
  12. NASACORT [Concomitant]
  13. PROTONIX [Concomitant]
  14. COMBIVENT [Concomitant]
  15. AMOXICILLIN [Concomitant]
  16. IBUPROFEN [Concomitant]
  17. ALBUTEROL [Concomitant]
  18. AZMACORT [Concomitant]
  19. CEPHALEXIN [Concomitant]
  20. ENLAPRIL (ENLAPRIL) [Concomitant]
  21. FUROSEMIDE [Concomitant]
  22. PEG 3350 AND ELECTROLYTES FOR ORAL SOLUTION [Concomitant]
  23. DOXYCYCLINE [Concomitant]
  24. LEVAQUIN [Concomitant]

REACTIONS (23)
  - AORTIC ARTERIOSCLEROSIS [None]
  - AORTIC CALCIFICATION [None]
  - AORTIC VALVE STENOSIS [None]
  - ARTERIOSCLEROSIS CORONARY ARTERY [None]
  - ASPARTATE AMINOTRANSFERASE DECREASED [None]
  - BLOOD CHOLESTEROL INCREASED [None]
  - BLOOD TRIGLYCERIDES INCREASED [None]
  - COLONIC POLYP [None]
  - CYST [None]
  - DIVERTICULUM [None]
  - EMPHYSEMA [None]
  - INTERVERTEBRAL DISC DEGENERATION [None]
  - INTERVERTEBRAL DISC PROTRUSION [None]
  - LYMPHADENOPATHY [None]
  - LYMPHADENOPATHY MEDIASTINAL [None]
  - MEAN PLATELET VOLUME DECREASED [None]
  - MONOCYTE PERCENTAGE INCREASED [None]
  - NODULE [None]
  - OPTIC ISCHAEMIC NEUROPATHY [None]
  - PROSTATIC INTRAEPITHELIAL NEOPLASIA [None]
  - PROTEIN TOTAL DECREASED [None]
  - SCOLIOSIS [None]
  - TESTICULAR MASS [None]
